FAERS Safety Report 8770379 (Version 2)
Quarter: 2012Q4

REPORT INFORMATION
  Report Type: 
  Country: US (occurrence: US)
  Receive Date: 20120906
  Receipt Date: 20120917
  Transmission Date: 20130627
  Serious: Yes (Hospitalization)
  Sender: FDA-Public Use
  Company Number: US-JNJFOC-20120815005

PATIENT
  Age: 63 Year
  Sex: Female

DRUGS (16)
  1. ACETAMINOPHEN\PSEUDOEPHEDRINE [Suspect]
     Indication: PRODUCT USED FOR UNKNOWN INDICATION
     Route: 065
  2. ACETAMINOPHEN W/PSEUDOEPHEDRINE [Suspect]
     Indication: PRODUCT USED FOR UNKNOWN INDICATION
     Route: 065
  3. SAXAGLIPTIN [Suspect]
     Indication: TYPE 2 DIABETES MELLITUS
     Route: 065
     Dates: start: 20110324
  4. PLACEBO [Suspect]
     Indication: TYPE 2 DIABETES MELLITUS
     Route: 065
     Dates: start: 20110324
  5. ASPIRIN [Concomitant]
     Route: 065
  6. GLICLAZIDE [Concomitant]
     Indication: TYPE 2 DIABETES MELLITUS
     Route: 065
  7. METFORMIN HYDROCHLORIDE [Concomitant]
     Indication: TYPE 2 DIABETES MELLITUS
     Route: 065
  8. BETA-BLOCKER, NOS [Concomitant]
  9. ANGIOTENSIN-CONVERTING ENZYME INHIBITORS [Concomitant]
  10. STATIN MEDICATION [Concomitant]
  11. DIURETIC [Concomitant]
  12. NITRATES [Concomitant]
  13. ANGIOTENSIN RECEPTOR BLOCKER NOS [Concomitant]
  14. UNKNOWN MEDICATION [Concomitant]
  15. TRIAMCINOLONE [Concomitant]
  16. ADCO-LINCTOPENT [Concomitant]

REACTIONS (1)
  - Ventricular tachycardia [Recovered/Resolved]
